FAERS Safety Report 10200643 (Version 1)
Quarter: 2014Q2

REPORT INFORMATION
  Report Type: Report from Study
  Country: US (occurrence: US)
  Receive Date: 20140528
  Receipt Date: 20140528
  Transmission Date: 20141212
  Serious: Yes (Other)
  Sender: FDA-Public Use
  Company Number: US-ROCHE-1406695

PATIENT
  Sex: Male
  Weight: 19.4 kg

DRUGS (2)
  1. NUTROPIN AQ [Suspect]
     Indication: BODY HEIGHT BELOW NORMAL
     Route: 058
  2. RANITIDINE [Concomitant]
     Dosage: HS
     Route: 048

REACTIONS (6)
  - Cardiac murmur [Unknown]
  - Feeding disorder [Unknown]
  - Weight gain poor [Unknown]
  - Failure to thrive [Unknown]
  - Headache [Unknown]
  - Dry skin [Unknown]
